FAERS Safety Report 9805816 (Version 1)
Quarter: 2014Q1

REPORT INFORMATION
  Report Type: Spontaneous
  Country: JP (occurrence: JP)
  Receive Date: 20140109
  Receipt Date: 20140109
  Transmission Date: 20141002
  Serious: Yes (Other)
  Sender: FDA-Public Use
  Company Number: PHHY2014JP001858

PATIENT
  Sex: Female

DRUGS (6)
  1. DIOVAN [Suspect]
     Dosage: 80 MG, DAILY
     Route: 048
  2. DIOVAN [Suspect]
     Dosage: 40 MG, DAILY
     Route: 048
  3. DIOVAN [Suspect]
     Dosage: 20 MG, DAILY
     Route: 048
  4. PLETAAL [Concomitant]
     Dosage: 50 MG, DAILY (IN THE MORNING)
     Route: 048
  5. PLETAAL [Concomitant]
     Dosage: 100 MG, DAILY (TAKEN DIVIDEDLY IN THE MORNING AND IN THE EVENING)
     Route: 048
  6. PLETAAL [Concomitant]
     Dosage: UNK UKN, UNK

REACTIONS (3)
  - Monoplegia [Recovered/Resolved]
  - Feeling abnormal [Unknown]
  - Incorrect dose administered [Unknown]
